FAERS Safety Report 5933577-5 (Version None)
Quarter: 2008Q4

REPORT INFORMATION
  Report Type: 
  Country: None (occurrence: None)
  Receive Date: 20081029
  Receipt Date: 20081023
  Transmission Date: 20090506
  Serious: Yes (Death, Life-Threatening, Hospitalization)
  Sender: FDA-Public Use
  Company Number: FR-WYE-G02422408

PATIENT
  Sex: Male

DRUGS (4)
  1. TAZOCILLINE [Suspect]
     Route: 042
     Dates: start: 20080828, end: 20080911
  2. CYCLOSPORINE [Suspect]
     Dosage: UNKNOWN
     Route: 048
     Dates: start: 20080821, end: 20080923
  3. ZOVIRAX [Suspect]
     Dosage: UNKNOWN
     Dates: start: 20080821
  4. VANCOMYCIN HYDROCHLORIDE [Suspect]
     Dosage: UNKNOWN
     Route: 048
     Dates: start: 20080821, end: 20080915

REACTIONS (9)
  - ALANINE AMINOTRANSFERASE INCREASED [None]
  - ASPARTATE AMINOTRANSFERASE INCREASED [None]
  - BLOOD ALKALINE PHOSPHATASE INCREASED [None]
  - CONJUNCTIVAL DISORDER [None]
  - DERMATITIS BULLOUS [None]
  - GAMMA-GLUTAMYLTRANSFERASE INCREASED [None]
  - RASH MACULO-PAPULAR [None]
  - RESPIRATORY DISORDER [None]
  - SKIN EXFOLIATION [None]
